FAERS Safety Report 7318755-5 (Version None)
Quarter: 2011Q1

REPORT INFORMATION
  Report Type: 
  Country: None (occurrence: None)
  Receive Date: 20110228
  Receipt Date: 20100308
  Transmission Date: 20110831
  Serious: Yes (Disabling, Other)
  Sender: FDA-Public Use
  Company Number: A0850342A

PATIENT
  Age: 41 Year
  Sex: Male

DRUGS (4)
  1. NEXIUM [Concomitant]
  2. IMITREX [Suspect]
     Indication: MIGRAINE
     Route: 065
  3. HYDROCHLOROTHIAZIDE [Concomitant]
  4. TOPAMAX [Concomitant]

REACTIONS (2)
  - VOMITING [None]
  - ABDOMINAL PAIN [None]
